FAERS Safety Report 7553465-0 (Version None)
Quarter: 2011Q2

REPORT INFORMATION
  Report Type: 
  Country: None (occurrence: None)
  Receive Date: 20110617
  Receipt Date: 20110603
  Transmission Date: 20111010
  Serious: Yes (Other)
  Sender: FDA-Public Use
  Company Number: US-BAYER-201033386NA

PATIENT
  Age: 17 Year
  Sex: Female
  Weight: 95.238 kg

DRUGS (5)
  1. MOTRIN [Concomitant]
  2. METFORMIN HCL [Concomitant]
  3. YASMIN [Suspect]
     Indication: POLYCYSTIC OVARIES
     Dosage: UNK
     Dates: start: 20060101, end: 20070101
  4. SPIRONOLACTONE [Concomitant]
  5. REGLAN [Concomitant]

REACTIONS (9)
  - UNEVALUABLE EVENT [None]
  - ERUCTATION [None]
  - CHEST PAIN [None]
  - FLATULENCE [None]
  - CHOLECYSTITIS INFECTIVE [None]
  - BACK PAIN [None]
  - VOMITING [None]
  - CHOLELITHIASIS [None]
  - NAUSEA [None]
